FAERS Safety Report 5135372-6 (Version None)
Quarter: 2006Q4

REPORT INFORMATION
  Report Type: 
  Country: None (occurrence: None)
  Receive Date: 20061026
  Receipt Date: 20061016
  Transmission Date: 20070319
  Serious: Yes (Other)
  Sender: FDA-Public Use
  Company Number: US-BRISTOL-MYERS SQUIBB COMPANY-13542501

PATIENT
  Age: 18 Month
  Sex: Female

DRUGS (4)
  1. CARBOPLATIN [Suspect]
     Indication: RETINOBLASTOMA
     Dosage: 20 MG PERIOCULAR INJECTIONS GIVEN TO BOTH EYES 4 TIMES IN RIGHT EYE, 3 TIMES IN LEFT EYE
     Route: 050
  2. CARBOPLATIN [Concomitant]
     Route: 042
  3. VINCRISTINE SULFATE [Concomitant]
     Route: 042
  4. ETOPOSIDE [Concomitant]
     Route: 042

REACTIONS (2)
  - OPTIC ATROPHY [None]
  - OPTIC NERVE INJURY [None]
